FAERS Safety Report 10210843 (Version 1)
Quarter: 2014Q2

REPORT INFORMATION
  Report Type: Spontaneous
  Country: US (occurrence: US)
  Receive Date: 20140602
  Receipt Date: 20140602
  Transmission Date: 20141212
  Serious: No
  Sender: FDA-Public Use
  Company Number: US-GILEAD-2014-0103604

PATIENT
  Age: 58 Year
  Sex: Male

DRUGS (2)
  1. SOVALDI [Suspect]
     Indication: PRODUCT USED FOR UNKNOWN INDICATION
     Route: 065
  2. RIBAVIRIN [Concomitant]

REACTIONS (4)
  - Product packaging quantity issue [Unknown]
  - Migraine [Unknown]
  - Hyperhidrosis [Unknown]
  - Anxiety [Unknown]
